FAERS Safety Report 5969066-1 (Version None)
Quarter: 2008Q4

REPORT INFORMATION
  Report Type: 
  Country: None (occurrence: None)
  Receive Date: 20081126
  Receipt Date: 20081119
  Transmission Date: 20090506
  Serious: Yes (Hospitalization)
  Sender: FDA-Public Use
  Company Number: US-BAXTER-2008BH012332

PATIENT
  Age: 56 Year
  Sex: Male

DRUGS (6)
  1. DIANEAL [Suspect]
     Indication: PERITONEAL DIALYSIS
     Route: 033
     Dates: start: 20081116
  2. DIANEAL [Suspect]
     Route: 033
     Dates: start: 20060705, end: 20081107
  3. DIANEAL [Suspect]
     Indication: PERITONEAL DIALYSIS
     Route: 033
     Dates: start: 20081116
  4. DIANEAL [Suspect]
     Route: 033
     Dates: start: 20060705, end: 20081107
  5. EXTRANEAL [Suspect]
     Indication: PERITONEAL DIALYSIS
     Route: 033
     Dates: end: 20081107
  6. EXTRANEAL [Suspect]
     Route: 033
     Dates: start: 20081116

REACTIONS (2)
  - CATHETER RELATED COMPLICATION [None]
  - MUSCLE SPASMS [None]
